FAERS Safety Report 14858781 (Version 1)
Quarter: 2018Q2

REPORT INFORMATION
  Report Type: Spontaneous
  Country: US (occurrence: US)
  Receive Date: 20180423
  Receipt Date: 20180423
  Transmission Date: 20180711
  Serious: Yes (Hospitalization)
  Sender: FDA-Public Use
  Company Number: None

PATIENT
  Age: 72 Year
  Sex: Female

DRUGS (25)
  1. POT CHLORIDE [Concomitant]
     Active Substance: POTASSIUM CHLORIDE
  2. FLUOXETINE [Concomitant]
     Active Substance: FLUOXETINE HYDROCHLORIDE
  3. OXYCONTIN [Concomitant]
     Active Substance: OXYCODONE HYDROCHLORIDE
  4. ACTEMRA [Suspect]
     Active Substance: TOCILIZUMAB
     Indication: RHEUMATOID ARTHRITIS
     Route: 048
     Dates: start: 20170328
  5. METHOTREXATE. [Concomitant]
     Active Substance: METHOTREXATE
  6. FLUOXETINE [Concomitant]
     Active Substance: FLUOXETINE HYDROCHLORIDE
  7. METFORMIN [Concomitant]
     Active Substance: METFORMIN HYDROCHLORIDE
  8. ALBUTEROL. [Concomitant]
     Active Substance: ALBUTEROL
  9. POT CL MICRO [Concomitant]
  10. IRON [Concomitant]
     Active Substance: IRON
  11. FUROSEMIDE. [Concomitant]
     Active Substance: FUROSEMIDE
  12. TRAZODONE [Concomitant]
     Active Substance: TRAZODONE HYDROCHLORIDE
  13. VICOZA [Concomitant]
  14. DILTIAZEM. [Concomitant]
     Active Substance: DILTIAZEM
  15. LYCRIA [Concomitant]
  16. NYSTOP [Concomitant]
     Active Substance: NYSTATIN
  17. IPRATROPIUM [Concomitant]
     Active Substance: IPRATROPIUM
  18. FOLIC ACID. [Concomitant]
     Active Substance: FOLIC ACID
  19. CALCIUM +D3 [Concomitant]
     Active Substance: CALCIUM\CHOLECALCIFEROL
  20. AMOLODIPINE [Concomitant]
  21. ACCU-CHEK TES AVIVA PL [Concomitant]
  22. BD PEN NEEDLE [Concomitant]
  23. OXYCONTIN [Concomitant]
     Active Substance: OXYCODONE HYDROCHLORIDE
  24. OXYCODONE AND ACETAMINOPHEN [Concomitant]
     Active Substance: ACETAMINOPHEN\OXYCODONE HYDROCHLORIDE
  25. NOVOLOG [Concomitant]
     Active Substance: INSULIN ASPART

REACTIONS (2)
  - Pulmonary oedema [None]
  - Drug dose omission [None]

NARRATIVE: CASE EVENT DATE: 201803
